FAERS Safety Report 8598390-1 (Version None)
Quarter: 2012Q3

REPORT INFORMATION
  Report Type: 
  Country: None (occurrence: None)
  Receive Date: 20120816
  Receipt Date: 20120808
  Transmission Date: 20120928
  Serious: Yes (Other)
  Sender: FDA-Public Use
  Company Number: US-JNJFOC-20120508365

PATIENT
  Sex: Male
  Weight: 74.84 kg

DRUGS (6)
  1. IBUPROFEN [Concomitant]
     Indication: ANTIINFLAMMATORY THERAPY
     Route: 065
  2. DOXYCYCLINE HCL [Concomitant]
     Indication: ANTI-INFECTIVE THERAPY
     Dosage: DOSE : 100 (UNITS UNSPECIFIED)
     Route: 065
  3. LEVAQUIN [Suspect]
     Indication: URINARY TRACT INFECTION
     Route: 048
     Dates: start: 20111003, end: 20111001
  4. LEVAQUIN [Suspect]
     Route: 048
     Dates: start: 20111003, end: 20111001
  5. LEVAQUIN [Suspect]
     Indication: CYSTITIS
     Route: 048
     Dates: start: 20110101, end: 20110101
  6. LEVAQUIN [Suspect]
     Route: 048
     Dates: start: 20110101, end: 20110101

REACTIONS (5)
  - INCONTINENCE [None]
  - CYSTITIS [None]
  - URINARY INCONTINENCE [None]
  - PARALYSIS [None]
  - NEUROPATHY PERIPHERAL [None]
